FAERS Safety Report 15483999 (Version 1)
Quarter: 2018Q4

REPORT INFORMATION
  Report Type: Spontaneous
  Country: ES (occurrence: ES)
  Receive Date: 20181010
  Receipt Date: 20181010
  Transmission Date: 20190205
  Serious: Yes (Other)
  Sender: FDA-Public Use
  Company Number: ES-MYLANLABS-2018M1074438

PATIENT
  Age: 37 Year
  Sex: Male

DRUGS (10)
  1. SALAZOPYRIN [Suspect]
     Active Substance: SULFASALAZINE
     Indication: IRIDOCYCLITIS
  2. SALAZOPYRIN [Suspect]
     Active Substance: SULFASALAZINE
     Indication: CHRONIC DISEASE
  3. METHOTREXATE. [Suspect]
     Active Substance: METHOTREXATE
     Indication: VITRITIS
  4. METHOTREXATE. [Suspect]
     Active Substance: METHOTREXATE
     Indication: IRIDOCYCLITIS
     Dosage: UNK
     Route: 065
  5. SALAZOPYRIN [Suspect]
     Active Substance: SULFASALAZINE
     Indication: ANKYLOSING SPONDYLITIS
     Dosage: UNK
  6. SALAZOPYRIN [Suspect]
     Active Substance: SULFASALAZINE
     Indication: VITRITIS
  7. METHOTREXATE. [Suspect]
     Active Substance: METHOTREXATE
     Indication: CHRONIC DISEASE
  8. METHOTREXATE. [Suspect]
     Active Substance: METHOTREXATE
     Indication: CYSTOID MACULAR OEDEMA
  9. METHOTREXATE. [Suspect]
     Active Substance: METHOTREXATE
     Indication: ANKYLOSING SPONDYLITIS
  10. SALAZOPYRIN [Suspect]
     Active Substance: SULFASALAZINE
     Indication: CYSTOID MACULAR OEDEMA

REACTIONS (1)
  - Drug resistance [Unknown]
